FAERS Safety Report 4884718-2 (Version None)
Quarter: 2005Q4

REPORT INFORMATION
  Report Type: 
  Country: None (occurrence: None)
  Receive Date: 20051201
  Receipt Date: 20050902
  Transmission Date: 20060501
  Serious: No
  Sender: FDA-Public Use
  Company Number: 2005PV001736

PATIENT
  Age: 41 Year
  Sex: Female
  Weight: 142.4295 kg

DRUGS (7)
  1. BYETTA [Suspect]
     Indication: DIABETES MELLITUS NON-INSULIN-DEPENDENT
     Dosage: 5 MCG; BID; SC
     Route: 058
     Dates: start: 20050902
  2. METFORMIN HCL [Concomitant]
  3. NOVOLOG MIX 70/30 [Concomitant]
  4. NORVASC [Concomitant]
  5. COZAAR [Concomitant]
  6. ZOCOR [Concomitant]
  7. IBUPROFEN [Concomitant]

REACTIONS (1)
  - INJECTION SITE HAEMORRHAGE [None]
